FAERS Safety Report 20247738 (Version 1)
Quarter: 2021Q4

REPORT INFORMATION
  Report Type: Spontaneous
  Country: US (occurrence: None)
  Receive Date: 20211228
  Receipt Date: 20211228
  Transmission Date: 20220303
  Serious: Yes (Hospitalization)
  Sender: FDA-Public Use
  Company Number: None

PATIENT
  Sex: Male

DRUGS (7)
  1. ENBREL [Suspect]
     Active Substance: ETANERCEPT
     Indication: Anaemia of chronic disease
     Route: 058
     Dates: start: 20200123
  2. ASPIRIN LOW TAB 81MG EC [Concomitant]
  3. ENBREL [Concomitant]
     Active Substance: ETANERCEPT
  4. FISH OIL [Concomitant]
     Active Substance: FISH OIL
  5. LISINO/HCTZ TAB [Concomitant]
  6. OMEPRAZOLE SODIUM [Concomitant]
     Active Substance: OMEPRAZOLE SODIUM
  7. RESTASIS EMU [Concomitant]

REACTIONS (1)
  - Hospitalisation [None]
